FAERS Safety Report 6547551-1 (Version None)
Quarter: 2010Q1

REPORT INFORMATION
  Report Type: 
  Country: None (occurrence: None)
  Receive Date: 20100122
  Receipt Date: 20100106
  Transmission Date: 20100710
  Serious: Yes (Hospitalization, Other)
  Sender: FDA-Public Use
  Company Number: PHEH2008US03634

PATIENT
  Sex: Female

DRUGS (40)
  1. ZELNORM [Suspect]
     Dosage: 6 MG / BID
     Dates: end: 20050808
  2. ZELNORM [Suspect]
     Dosage: 6 MG / BID
     Dates: start: 20060801, end: 20070710
  3. PENTASA [Concomitant]
     Dosage: 250 MG / BID
     Dates: end: 20080508
  4. PENTASA [Concomitant]
     Dosage: 1 GRAM / BID
     Dates: start: 20080508
  5. ESTRADIOL [Concomitant]
     Dosage: 0.1 .G / DAILY
     Dates: end: 20070710
  6. KLOR-CON [Concomitant]
     Dosage: 10 MCG
  7. PREVACID [Concomitant]
     Dosage: 30 MG / DAILY
  8. CARTIA XT [Concomitant]
     Dosage: 180  / DAILY
  9. XANAX [Concomitant]
     Dosage: 05 MG  / PRN
  10. FOLIC ACID [Concomitant]
     Dosage: UNK
  11. ASPIRIN [Concomitant]
     Dosage: UNK
  12. PLAVIX [Concomitant]
     Dosage: 75 MG / DAILY
  13. NITRO-SPRAY [Concomitant]
     Dosage: UNK
  14. MIRALAX [Concomitant]
     Dosage: UNK
  15. MAG-OX [Concomitant]
     Dosage: 400  / BID
     Dates: end: 20070710
  16. PATANOL [Concomitant]
     Dosage: UNK
     Dates: end: 20070910
  17. RESTASIS [Concomitant]
     Dosage: UNK
  18. LEXAPRO [Concomitant]
     Dosage: 40 MG / DAILY
  19. CALTRATE [Concomitant]
     Dosage: 600 MG / DAILY
     Route: 048
     Dates: end: 20080717
  20. ZYRTEC [Concomitant]
     Dosage: 10 MG / DAILY
     Route: 048
     Dates: end: 20080717
  21. FISH OIL [Concomitant]
     Dosage: UNK
  22. CRESTOR [Concomitant]
     Dosage: 10 MG / DAILY
     Dates: end: 20080131
  23. LYRICA [Concomitant]
     Dosage: 75 MG / DAILY
     Route: 048
  24. DARVOCET-N 100 [Concomitant]
     Dosage: UNK
  25. PREDNISONE [Concomitant]
     Dosage: 5 MG / DAILY
     Route: 048
  26. ZETIA [Concomitant]
     Dosage: 20 MG / DAILY
  27. AMITIZA [Concomitant]
     Dosage: 24 MG / DAILY
     Route: 048
  28. BYSTOLIC [Concomitant]
     Dosage: 5 MG / DAILY
  29. VALIUM [Concomitant]
     Dosage: 10 MG
  30. POTASSIUM CHLORIDE [Concomitant]
     Dosage: 20 MEQ, UNK
  31. CARDIZEM [Concomitant]
     Dosage: 180 MG, UNK
  32. NITROGLYCERIN [Concomitant]
     Dosage: UNK
  33. LASIX [Concomitant]
     Dosage: UNK
  34. ASPIRIN [Concomitant]
     Dosage: UNK
  35. CLIMARA [Concomitant]
     Dosage: UNK
  36. CANASA [Concomitant]
     Dosage: UNK
     Route: 054
     Dates: start: 20080508
  37. ANALPRAM HC [Concomitant]
     Dosage: UNK
  38. VERAPAMIL [Concomitant]
     Dosage: 120 MG
  39. AMBIEN [Concomitant]
     Dosage: 10 MG
  40. LOPRESSOR [Concomitant]
     Dosage: 50 MG

REACTIONS (29)
  - ANAL FISSURE [None]
  - ANGINA UNSTABLE [None]
  - BLINDNESS [None]
  - BLOOD CREATINE PHOSPHOKINASE INCREASED [None]
  - BLOOD PRESSURE FLUCTUATION [None]
  - CARDIAC FAILURE CONGESTIVE [None]
  - CAROTID ARTERY DISEASE [None]
  - CATHETERISATION CARDIAC [None]
  - CHEST PAIN [None]
  - CORONARY ARTERY DISEASE [None]
  - CROHN'S DISEASE [None]
  - DEVICE OCCLUSION [None]
  - DIASTOLIC DYSFUNCTION [None]
  - DIZZINESS [None]
  - DYSPNOEA EXERTIONAL [None]
  - FATIGUE [None]
  - FEELING ABNORMAL [None]
  - INFLAMMATORY BOWEL DISEASE [None]
  - INJURY [None]
  - INTERMITTENT CLAUDICATION [None]
  - LEFT VENTRICULAR HYPERTROPHY [None]
  - MITRAL VALVE INCOMPETENCE [None]
  - NAUSEA [None]
  - OESOPHAGITIS [None]
  - POLYMYOSITIS [None]
  - PROCTALGIA [None]
  - RECTAL HAEMORRHAGE [None]
  - THROMBOSIS [None]
  - VERTIGO POSITIONAL [None]
